FAERS Safety Report 24429303 (Version 1)
Quarter: 2024Q4

REPORT INFORMATION
  Report Type: Spontaneous
  Country: US (occurrence: US)
  Receive Date: 20241011
  Receipt Date: 20241011
  Transmission Date: 20250115
  Serious: Yes (Hospitalization, Other)
  Sender: GLAXOSMITHKLINE
  Company Number: US-GSK-US2024GSK122848

PATIENT

DRUGS (5)
  1. SUMATRIPTAN [Suspect]
     Active Substance: SUMATRIPTAN
     Indication: Migraine
     Dosage: 100 MG
     Route: 048
  2. LIDOCAINE [Concomitant]
     Active Substance: LIDOCAINE
     Indication: Analgesic therapy
     Dosage: 3 ML
  3. BUPIVACAINE [Concomitant]
     Active Substance: BUPIVACAINE
     Indication: Analgesic therapy
     Dosage: 6 ML
  4. CLONAZEPAM [Concomitant]
     Active Substance: CLONAZEPAM
     Indication: Anxiety
     Dosage: UNK
  5. CLONAZEPAM [Concomitant]
     Active Substance: CLONAZEPAM
     Indication: Panic attack

REACTIONS (9)
  - Acute myocardial infarction [Unknown]
  - Dizziness [Unknown]
  - Tremor [Unknown]
  - Feeling jittery [Unknown]
  - Panic attack [Recovering/Resolving]
  - Hypertension [Unknown]
  - Chest discomfort [Unknown]
  - Vasospasm [Unknown]
  - Hypertensive emergency [Unknown]
